FAERS Safety Report 7389025-4 (Version None)
Quarter: 2011Q1

REPORT INFORMATION
  Report Type: 
  Country: None (occurrence: None)
  Receive Date: 20110329
  Receipt Date: 20110329
  Transmission Date: 20110831
  Serious: Yes (Other)
  Sender: FDA-Public Use
  Company Number: None

PATIENT
  Age: 56 Year
  Sex: Male
  Weight: 104.3273 kg

DRUGS (1)
  1. VICODIN [Suspect]
     Indication: PROCEDURAL PAIN
     Dosage: 2 TABLETS 4 HRS
     Dates: start: 20110318, end: 20110319

REACTIONS (2)
  - DRUG INEFFECTIVE [None]
  - MALAISE [None]
